FAERS Safety Report 6766193-6 (Version None)
Quarter: 2010Q2

REPORT INFORMATION
  Report Type: 
  Country: None (occurrence: None)
  Receive Date: 20100611
  Receipt Date: 20100601
  Transmission Date: 20101027
  Serious: Yes (Hospitalization)
  Sender: FDA-Public Use
  Company Number: DE-PFIZER INC-2010068266

PATIENT
  Age: 81 Year
  Sex: Male
  Weight: 98 kg

DRUGS (17)
  1. CLINDAMYCIN PHOSPHATE [Suspect]
     Indication: SPONDYLITIS
     Dosage: 600 MG, 3X/DAY
     Route: 048
     Dates: start: 20090204, end: 20090316
  2. CLINDAMYCIN PHOSPHATE [Suspect]
     Indication: PSOAS ABSCESS
  3. CLINDAMYCIN PHOSPHATE [Suspect]
     Dosage: 600 MG, 1X/DAY
     Route: 041
     Dates: start: 20090319, end: 20090319
  4. CLINDAMYCIN PHOSPHATE [Suspect]
     Dosage: 600 MG, 2X/DAY
     Route: 042
     Dates: start: 20090320, end: 20090320
  5. VANCOMYCIN [Suspect]
     Indication: PSOAS ABSCESS
     Dosage: 1000 MG, 2X/DAY
     Route: 041
     Dates: start: 20090319, end: 20090330
  6. VANCOMYCIN [Suspect]
     Indication: SPONDYLITIS
  7. RAMIPRIL [Concomitant]
     Indication: HYPERTENSION
     Dosage: 2.5 MG, 2X/DAY
     Route: 048
     Dates: start: 20081201, end: 20090315
  8. SPIRONOLACTONE [Concomitant]
     Indication: ASCITES
     Dosage: UNK
     Dates: start: 20080701
  9. BISOPROLOL [Concomitant]
     Indication: HYPERTENSION
     Dosage: 2.5 MG, 1X/DAY
     Route: 048
     Dates: start: 20081201, end: 20090316
  10. COLDASTOP [Concomitant]
     Indication: EPISTAXIS
     Dosage: 1 DF, 3X/DAY
     Route: 045
     Dates: start: 20090201
  11. PERENTEROL [Concomitant]
     Indication: DISBACTERIOSIS
     Dosage: 50 MG, 2X/DAY
     Route: 048
     Dates: start: 20090201, end: 20090408
  12. ASPIRIN [Concomitant]
     Indication: CARDIOVASCULAR EVENT PROPHYLAXIS
     Dosage: 100 MG, 1X/DAY
     Route: 048
     Dates: start: 19900101
  13. TORSEMIDE [Concomitant]
     Indication: HYPERTENSION
     Dosage: 1-1/2-0 DAILY
     Route: 048
     Dates: start: 20080701
  14. TAMSULOSIN [Concomitant]
     Indication: BENIGN PROSTATIC HYPERPLASIA
     Dosage: 0.4 MG, 1X/DAY
     Route: 048
     Dates: start: 20080701
  15. CIPRALEX [Concomitant]
     Indication: RESTLESSNESS
     Dosage: 20 MG, 1X/DAY
     Route: 048
     Dates: start: 20090201
  16. DIPYRONE TAB [Concomitant]
     Indication: PAIN
     Dosage: 500 MG, 1X/DAY
     Dates: start: 20090201
  17. ACETYLSALICYLIC ACID [Concomitant]
     Indication: BACK PAIN
     Dosage: 500 MG, WEEKLY
     Dates: start: 20090101

REACTIONS (2)
  - PSEUDOMEMBRANOUS COLITIS [None]
  - RENAL FAILURE ACUTE [None]
